FAERS Safety Report 19784379 (Version 1)
Quarter: 2021Q3

REPORT INFORMATION
  Report Type: Spontaneous
  Country: US (occurrence: US)
  Receive Date: 20210901
  Receipt Date: 20210901
  Transmission Date: 20211014
  Serious: No
  Sender: FDA-Public Use
  Company Number: None

PATIENT
  Sex: Male

DRUGS (1)
  1. IMATINIB MESYLATE 400MG TEVA PHARMACEUTICALS INC [Suspect]
     Active Substance: IMATINIB MESYLATE
     Indication: COLON CANCER
     Route: 048
     Dates: start: 201602

REACTIONS (3)
  - Vomiting [None]
  - Product quality issue [None]
  - Nausea [None]
